FAERS Safety Report 14536456 (Version 1)
Quarter: 2018Q1

REPORT INFORMATION
  Report Type: Spontaneous
  Country: FR (occurrence: FR)
  Receive Date: 20180215
  Receipt Date: 20180215
  Transmission Date: 20180509
  Serious: Yes (Hospitalization)
  Sender: FDA-Public Use
  Company Number: FR-TEVA-2018-FR-856129

PATIENT
  Age: 69 Year
  Sex: Female

DRUGS (6)
  1. AMBROXOL BASE [Suspect]
     Active Substance: AMBROXOL
     Indication: LUNG INFECTION
     Route: 048
     Dates: start: 20171019
  2. BUDESONIDE. [Suspect]
     Active Substance: BUDESONIDE
     Indication: LUNG INFECTION
     Route: 055
     Dates: start: 20171019
  3. FORMOTEROL FUMARATE DIHYDRATE [Suspect]
     Active Substance: FORMOTEROL FUMARATE DIHYDRATE
     Indication: LUNG INFECTION
     Route: 055
     Dates: start: 20171019
  4. PULMICORT TURBUHALER [Suspect]
     Active Substance: BUDESONIDE
     Indication: LUNG INFECTION
     Route: 055
     Dates: start: 20171019
  5. AUGMENTIN [Suspect]
     Active Substance: AMOXICILLIN\CLAVULANATE POTASSIUM
     Indication: LUNG INFECTION
     Dosage: 2 GRAM DAILY;
     Route: 048
     Dates: start: 20171019, end: 20171026
  6. CIFLOX (CIPROFLOXACIN HYDROCHLORIDE) [Suspect]
     Active Substance: CIPROFLOXACIN HYDROCHLORIDE
     Indication: LUNG INFECTION
     Dosage: 1000 MILLIGRAM DAILY;
     Route: 048
     Dates: start: 20171026

REACTIONS (2)
  - Neutropenia [Recovered/Resolved]
  - Anaemia [Recovered/Resolved]

NARRATIVE: CASE EVENT DATE: 20171027
